FAERS Safety Report 9284282 (Version 1)
Quarter: 2013Q2

REPORT INFORMATION
  Report Type: Spontaneous
  Country: US (occurrence: US)
  Receive Date: 20130510
  Receipt Date: 20130510
  Transmission Date: 20140414
  Serious: No
  Sender: FDA-Public Use
  Company Number: US-009507513-1303USA010455

PATIENT
  Sex: Female

DRUGS (4)
  1. MIRALAX [Suspect]
     Indication: CONSTIPATION
     Dosage: UNK, UNKNOWN
     Route: 048
  2. MIRALAX [Suspect]
     Indication: MEDICAL OBSERVATION
     Dosage: UNK, UNKNOWN
     Route: 048
     Dates: start: 20130125
  3. COLACE [Suspect]
     Indication: CONSTIPATION
     Dosage: UNK, UNKNOWN
     Dates: start: 20130126
  4. COLACE [Suspect]
     Indication: MEDICAL OBSERVATION

REACTIONS (5)
  - Pollakiuria [Unknown]
  - Insomnia [Unknown]
  - Malaise [Unknown]
  - Frequent bowel movements [Recovering/Resolving]
  - Drug effect delayed [Unknown]
